FAERS Safety Report 6013227-2 (Version None)
Quarter: 2008Q4

REPORT INFORMATION
  Report Type: 
  Country: None (occurrence: None)
  Receive Date: 20081218
  Receipt Date: 20081218
  Transmission Date: 20090506
  Serious: No
  Sender: FDA-Public Use
  Company Number: None

PATIENT
  Sex: Female
  Weight: 75 kg

DRUGS (9)
  1. LIPITOR [Suspect]
     Dosage: 20 MG TABLET 20 MG QD ORAL
     Route: 048
     Dates: start: 20080923, end: 20081217
  2. ADVAIR DISKUS 100/50 [Concomitant]
  3. AMMONIUM LACTATE [Concomitant]
  4. CARMOL [Concomitant]
  5. CLOBETASOL PROPIONATE [Concomitant]
  6. COREG CR (CARVEDILOL EXTENDED RELEASE) [Concomitant]
  7. DIOVAN [Concomitant]
  8. HYDROCHLOROTHIAZIDE [Concomitant]
  9. OMEPRAZOLE [Concomitant]

REACTIONS (2)
  - HEPATOTOXICITY [None]
  - MYOSITIS [None]
